FAERS Safety Report 9169052 (Version 1)
Quarter: 2013Q1

REPORT INFORMATION
  Report Type: Spontaneous
  Country: US (occurrence: US)
  Receive Date: 20130318
  Receipt Date: 20130318
  Transmission Date: 20140127
  Serious: Yes (Hospitalization)
  Sender: FDA-Public Use
  Company Number: US-GLAXOSMITHKLINE-A0916968A

PATIENT
  Age: 63 Year
  Sex: Female

DRUGS (6)
  1. LAMICTAL [Suspect]
     Indication: CONVULSION
     Dosage: 200MG THREE TIMES PER DAY
     Route: 048
  2. KEPPRA [Concomitant]
  3. KLONOPIN [Concomitant]
  4. PLAVIX [Concomitant]
  5. DIOVAN [Concomitant]
  6. METOPROLOL [Concomitant]

REACTIONS (4)
  - Convulsion [Unknown]
  - Myocardial infarction [Unknown]
  - Amnesia [Unknown]
  - Head injury [Unknown]
